FAERS Safety Report 7995910-2 (Version None)
Quarter: 2011Q4

REPORT INFORMATION
  Report Type: 
  Country: None (occurrence: None)
  Receive Date: 20111220
  Receipt Date: 20111213
  Transmission Date: 20120403
  Serious: Yes (Other)
  Sender: FDA-Public Use
  Company Number: US-US-EMD SERONO, INC.-7007500

PATIENT
  Sex: Female
  Weight: 69 kg

DRUGS (5)
  1. REBIF [Suspect]
     Indication: MULTIPLE SCLEROSIS
     Route: 058
     Dates: start: 20090413
  2. PROCRIT [Concomitant]
     Indication: ANAEMIA
     Route: 058
  3. NORVASC [Concomitant]
     Indication: HYPERTENSION
  4. TOPROL-XL [Concomitant]
     Indication: HYPERTENSION
  5. UNSPECIFIED MEDICATIONS [Concomitant]
     Indication: PAIN
     Route: 048

REACTIONS (3)
  - DISCOMFORT [None]
  - MYCOTOXICOSIS [None]
  - SWELLING FACE [None]
